FAERS Safety Report 8455575-2 (Version None)
Quarter: 2012Q2

REPORT INFORMATION
  Report Type: 
  Country: None (occurrence: None)
  Receive Date: 20120621
  Receipt Date: 20120611
  Transmission Date: 20120825
  Serious: Yes (Death, Hospitalization, Other)
  Sender: FDA-Public Use
  Company Number: US-VERTEX PHARMACEUTICALS INC.-AE-2012-008621

PATIENT
  Sex: Female

DRUGS (3)
  1. PEGASYS [Concomitant]
     Indication: HEPATITIS C
     Dates: start: 20120301
  2. RIBAVIRIN [Concomitant]
     Indication: HEPATITIS C
     Dates: start: 20120301
  3. INCIVEK [Suspect]
     Indication: HEPATITIS C
     Dates: start: 20120301

REACTIONS (7)
  - COMA [None]
  - STAPHYLOCOCCAL INFECTION [None]
  - RASH GENERALISED [None]
  - CONVULSION [None]
  - CEREBRAL HAEMORRHAGE [None]
  - RENAL FAILURE [None]
  - HEADACHE [None]
